FAERS Safety Report 8549371-5 (Version None)
Quarter: 2012Q3

REPORT INFORMATION
  Report Type: 
  Country: None (occurrence: None)
  Receive Date: 20120720
  Receipt Date: 20120720
  Transmission Date: 20120928
  Serious: No
  Sender: FDA-Public Use
  Company Number: None

PATIENT
  Age: 70 Year
  Sex: Female
  Weight: 68.0396 kg

DRUGS (2)
  1. DILAUDID [Suspect]
     Indication: PAIN
     Dosage: 1.4 MG OR, 0.4 MG PACU IV
     Route: 042
     Dates: start: 20110425, end: 20110425
  2. MORPHINE SULFATE [Suspect]
     Indication: PAIN
     Dosage: 20 MG TOTAL INTRASYNOVIAL
     Route: 035
     Dates: start: 20110424, end: 20110425

REACTIONS (1)
  - RESPIRATORY RATE DECREASED [None]
